FAERS Safety Report 7110727 (Version 2)
Quarter: 2014Q4

REPORT INFORMATION
  Report Type: Spontaneous
  Country: FR (occurrence: FR)
  Receive Date: 20090911
  Receipt Date: 20141218
  Transmission Date: 20150529
  Serious: Yes (Hospitalization)
  Sender: FDA-Public Use
  Company Number: FR-ALLERGAN-0912578US

PATIENT
  Age: 83 Year
  Sex: Female

DRUGS (10)
  1. DETENSIEL [Concomitant]
     Active Substance: BISOPROLOL FUMARATE
  2. EQUANIL [Concomitant]
     Active Substance: MEPROBAMATE
  3. TROSPIUM CHLORIDE. [Suspect]
     Active Substance: TROSPIUM CHLORIDE
     Indication: HYPERTONIC BLADDER
     Dosage: 20 MG, BID
     Route: 048
     Dates: end: 20090731
  4. NOVONORM [Concomitant]
     Active Substance: REPAGLINIDE
  5. KARDEGIC [Concomitant]
     Active Substance: ASPIRIN LYSINE
  6. UVEDOSE [Concomitant]
     Active Substance: CHOLECALCIFEROL
  7. LEVOTHYROX [Concomitant]
     Active Substance: LEVOTHYROXINE
  8. ALDACTONE [Concomitant]
     Active Substance: SPIRONOLACTONE
  9. EUPRESSYL [Concomitant]
     Active Substance: URAPIDIL
  10. GLUCOPHAGE [Concomitant]
     Active Substance: METFORMIN HYDROCHLORIDE

REACTIONS (3)
  - Confusional state [Recovering/Resolving]
  - Cognitive disorder [Recovering/Resolving]
  - Tachyarrhythmia [Recovering/Resolving]

NARRATIVE: CASE EVENT DATE: 20090722
